FAERS Safety Report 6588388-7 (Version None)
Quarter: 2010Q1

REPORT INFORMATION
  Report Type: 
  Country: None (occurrence: None)
  Receive Date: 20100218
  Receipt Date: 20091116
  Transmission Date: 20100710
  Serious: Yes (Other)
  Sender: FDA-Public Use
  Company Number: US-ALLERGAN-0911692US

PATIENT
  Age: 57 Year
  Sex: Female
  Weight: 58.05 kg

DRUGS (23)
  1. BOTOX [Suspect]
     Indication: MIGRAINE
     Dosage: 100 UNITS, SINGLE
     Route: 030
     Dates: start: 20090730, end: 20090730
  2. BOTOX [Suspect]
     Dosage: 100 UNITS, SINGLE
     Route: 030
     Dates: start: 20090409, end: 20090409
  3. BOTOX [Suspect]
     Dosage: 100 UNITS, SINGLE
     Route: 030
     Dates: start: 20090108, end: 20090108
  4. BOTOX [Suspect]
     Dosage: 100 UNITS, SINGLE
     Route: 030
     Dates: start: 20080814, end: 20080814
  5. BOTOX [Suspect]
     Dosage: 100 UNITS, SINGLE
     Route: 030
     Dates: start: 20080515, end: 20080515
  6. BOTOX [Suspect]
     Dosage: 100 UNITS, SINGLE
     Route: 030
     Dates: start: 20080128, end: 20080128
  7. BOTOX [Suspect]
     Dosage: 100 UNITS, SINGLE
     Route: 030
     Dates: start: 20070920, end: 20070920
  8. BOTOX [Suspect]
     Dosage: 100 UNITS, SINGLE
     Route: 030
     Dates: start: 20070614, end: 20070614
  9. BOTOX [Suspect]
     Dosage: 100 UNITS, SINGLE
     Route: 030
     Dates: start: 20070315, end: 20070315
  10. BOTOX [Suspect]
     Dosage: 100 UNITS, SINGLE
     Route: 030
     Dates: start: 20061221, end: 20061221
  11. BOTOX [Suspect]
     Dosage: 100 UNITS, SINGLE
     Route: 030
     Dates: start: 20060921, end: 20060921
  12. BOTOX [Suspect]
     Dosage: 100 UNITS, SINGLE
     Route: 030
     Dates: start: 20060629, end: 20060629
  13. BOTOX [Suspect]
     Dosage: 100 UNITS, SINGLE
     Route: 030
     Dates: start: 20060323, end: 20060323
  14. NEXIUM [Concomitant]
     Dosage: 40 MG, QAM
     Dates: start: 20090219
  15. RANITIDINE HCL [Concomitant]
     Dosage: 300 MG, QHS
     Dates: start: 20090122
  16. VITAMIN E [Concomitant]
     Dosage: UNK
     Dates: start: 20080925
  17. VITAMIN C [Concomitant]
     Dosage: UNK
     Dates: start: 20080925
  18. VITAMIN B6 [Concomitant]
     Dosage: UNK
     Dates: start: 20080925
  19. VITAMIN B-12 [Concomitant]
     Dosage: UNK
     Dates: start: 20080925
  20. FISH OIL [Concomitant]
     Dosage: UNK
     Dates: start: 20080925
  21. CENTRUM [Concomitant]
     Dosage: UNK
     Dates: start: 20080925
  22. CALCIUM [Concomitant]
     Dosage: UNK
     Dates: start: 20080925
  23. ASPIRIN [Concomitant]
     Dosage: 81 MG, QD
     Dates: start: 20041006

REACTIONS (2)
  - MIGRAINE [None]
  - MUSCULAR WEAKNESS [None]
